FAERS Safety Report 9526948 (Version 1)
Quarter: 2013Q1

REPORT INFORMATION
  Report Type: Spontaneous
  Country: US (occurrence: None)
  Receive Date: 20130305
  Receipt Date: 20130305
  Transmission Date: 20140127
  Serious: Yes (Other)
  Sender: FDA-Public Use
  Company Number: 163-21880-11120992

PATIENT
  Age: 67 Year
  Sex: Female
  Weight: 86.2 kg

DRUGS (13)
  1. REVLIMID [Suspect]
     Indication: PLASMA CELL MYELOMA
     Dosage: 25 MG, DAILY X 21 DAYS, OFF 7 DAYS, REPEAT, PO
     Route: 048
     Dates: start: 20110922
  2. COUMADIN WARFARIN SODIUM [Concomitant]
  3. ACYCLOVIR  ACICLOVIR [Concomitant]
  4. GLUCOPHAGE METFORMIN HYDROCHLORIDE [Concomitant]
  5. ZOMETA ZOLEDRONIC ACID [Concomitant]
  6. EFFEXOR VENLAFAXINE HYDROCHLORIDE [Concomitant]
  7. SYNTHROID LEVOTHYROXINE SODIUM [Concomitant]
  8. METFORMIN METFORMIN [Concomitant]
  9. TAMOXIFEN TAMOXIFEN [Concomitant]
  10. PREDNISONE PREDNISONE [Concomitant]
  11. DEXAMETHASONE DEXAMETHASONE [Concomitant]
  12. CIPRO CIPROFLOXACIN [Concomitant]
  13. INFLUENZA INFLUENZA VACCINE [Concomitant]

REACTIONS (7)
  - Platelet count decreased [None]
  - Abdominal discomfort [None]
  - Pruritus [None]
  - Blood glucose increased [None]
  - Pruritus [None]
  - Drug intolerance [None]
  - Neuropathy peripheral [None]
